FAERS Safety Report 17442457 (Version 2)
Quarter: 2020Q1

REPORT INFORMATION
  Report Type: Spontaneous
  Country: US (occurrence: US)
  Receive Date: 20200220
  Receipt Date: 20200228
  Transmission Date: 20200409
  Serious: No
  Sender: FDA-Public Use
  Company Number: US-009507513-2002USA006084

PATIENT
  Age: 32 Year
  Sex: Female
  Weight: 68.03 kg

DRUGS (1)
  1. NEXPLANON [Suspect]
     Active Substance: ETONOGESTREL
     Dosage: ROD
     Route: 059
     Dates: end: 20200130

REACTIONS (6)
  - Injury [Unknown]
  - Device breakage [Recovered/Resolved]
  - Exposure to violent event [Unknown]
  - Medical device site discomfort [Unknown]
  - Complication of device removal [Recovered/Resolved]
  - Device kink [Recovered/Resolved]
